FAERS Safety Report 15869236 (Version 1)
Quarter: 2019Q1

REPORT INFORMATION
  Report Type: Report from Study
  Country: None (occurrence: CA)
  Receive Date: 20190125
  Receipt Date: 20190125
  Transmission Date: 20190417
  Serious: Yes (Other)
  Sender: FDA-Public Use
  Company Number: CA-ABBVIE-19K-028-2639909-00

PATIENT
  Age: 30 Year
  Sex: Female

DRUGS (1)
  1. HUMIRA [Suspect]
     Active Substance: ADALIMUMAB
     Indication: CROHN^S DISEASE
     Route: 058
     Dates: start: 20170829

REACTIONS (5)
  - Gastrointestinal obstruction [Unknown]
  - Vomiting [Unknown]
  - Constipation [Unknown]
  - Crohn^s disease [Unknown]
  - Hypophagia [Unknown]

NARRATIVE: CASE EVENT DATE: 201812
